FAERS Safety Report 12550175 (Version 2)
Quarter: 2016Q3

REPORT INFORMATION
  Report Type: Spontaneous
  Country: BR (occurrence: BR)
  Receive Date: 20160712
  Receipt Date: 20160729
  Transmission Date: 20161109
  Serious: Yes (Other)
  Sender: FDA-Public Use
  Company Number: BR-ELI_LILLY_AND_COMPANY-BR201607001097

PATIENT
  Age: 65 Year
  Sex: Male
  Weight: 81 kg

DRUGS (2)
  1. CIALIS [Suspect]
     Active Substance: TADALAFIL
     Indication: PRODUCT USED FOR UNKNOWN INDICATION
     Dosage: 20 MG, PRN
     Route: 048
     Dates: start: 20160703, end: 20160703
  2. ALCOHOL. [Concomitant]
     Active Substance: ALCOHOL
     Indication: PRODUCT USED FOR UNKNOWN INDICATION
     Dosage: UNK, UNKNOWN
     Route: 065

REACTIONS (22)
  - Laryngeal oedema [Recovered/Resolved]
  - Tremor [Recovered/Resolved]
  - Pelvic pain [Recovered/Resolved]
  - Eyelid disorder [Recovered/Resolved]
  - Tinnitus [Recovered/Resolved]
  - Erythema [Recovered/Resolved]
  - Eye pain [Recovered/Resolved]
  - Headache [Recovered/Resolved]
  - Eyelids pruritus [Recovered/Resolved]
  - Feeling hot [Recovered/Resolved]
  - Irritability [Recovered/Resolved]
  - Paraesthesia oral [Recovered/Resolved]
  - Frequent bowel movements [Recovered/Resolved]
  - Hypertension [Recovered/Resolved]
  - Anal incontinence [Recovered/Resolved]
  - Hypoaesthesia [Recovered/Resolved]
  - Tachycardia [Recovered/Resolved]
  - Dizziness [Recovered/Resolved]
  - Penile pain [Recovered/Resolved]
  - Flatulence [Recovered/Resolved]
  - Somnolence [Recovered/Resolved]
  - Dyspepsia [Recovered/Resolved]

NARRATIVE: CASE EVENT DATE: 20160703
